FAERS Safety Report 8337206-5 (Version None)
Quarter: 2012Q2

REPORT INFORMATION
  Report Type: 
  Country: None (occurrence: None)
  Receive Date: 20120504
  Receipt Date: 20120430
  Transmission Date: 20120825
  Serious: Yes (Other)
  Sender: FDA-Public Use
  Company Number: US-PFIZER INC-2012063016

PATIENT
  Sex: Male

DRUGS (2)
  1. ZOLOFT [Suspect]
     Dosage: 100MG, ONCE DAILY
     Route: 048
  2. LIPITOR [Suspect]
     Dosage: 10MG, ONCE DAILY
     Route: 048

REACTIONS (1)
  - HYPOACUSIS [None]
